FAERS Safety Report 15922771 (Version 4)
Quarter: 2019Q3

REPORT INFORMATION
  Report Type: Spontaneous
  Country: CA (occurrence: CA)
  Receive Date: 20190206
  Receipt Date: 20190708
  Transmission Date: 20191004
  Serious: Yes (Other)
  Sender: FDA-Public Use
  Company Number: CA-CELLTRION INC.-2019CA018507

PATIENT

DRUGS (14)
  1. PREDNISONE. [Concomitant]
     Active Substance: PREDNISONE
     Dosage: 40 MG, 1X/DAY (OD)
     Route: 048
  2. DALTEPARIN [Concomitant]
     Active Substance: DALTEPARIN
     Dosage: 5000 IU, DAILY
     Route: 058
     Dates: start: 201901
  3. PROCTOSEDYL [CINCHOCAINE HYDROCHLORIDE;HYDROCORTISONE] [Concomitant]
     Indication: HAEMORRHOIDS
     Dosage: UNK UNK, 2XDAY FOR 14 DAY
     Route: 054
     Dates: start: 20190114
  4. INFLECTRA [Suspect]
     Active Substance: INFLIXIMAB-DYYB
     Dosage: 300 MG (5 MG/KG) (EVERY 0,2,6 WEEKS, THEN EVERY 8 WEEKS)
     Route: 042
     Dates: start: 20190429
  5. INFLECTRA [Suspect]
     Active Substance: INFLIXIMAB-DYYB
     Dosage: 300 MG (5 MG/KG) (EVERY 0,2,6 WEEKS, THEN EVERY 8 WEEKS)
     Route: 042
     Dates: start: 20190225
  6. ASACOL [Concomitant]
     Active Substance: MESALAMINE
     Dosage: 1.3 G, UNK
  7. PREDNISONE. [Concomitant]
     Active Substance: PREDNISONE
     Dosage: INCREASED IT BACK TO 40 MG DAILY
  8. HYDROCORTISONE. [Concomitant]
     Active Substance: HYDROCORTISONE
     Indication: HAEMORRHOIDS
     Dosage: 25 MG, 2X/DAY FOR 14 DAYS
     Route: 054
     Dates: start: 20190114
  9. INFLECTRA [Suspect]
     Active Substance: INFLIXIMAB-DYYB
     Indication: COLITIS ULCERATIVE
     Dosage: 300 MG (5 MG/KG) (EVERY 0,2,6 WEEKS, THEN EVERY 8 WEEKS)
     Route: 042
     Dates: start: 20190114
  10. PREDNISONE. [Concomitant]
     Active Substance: PREDNISONE
     Dosage: TAPER DOWN TO 30 MG
  11. METHYLPREDNISOLONE. [Concomitant]
     Active Substance: METHYLPREDNISOLONE
     Dosage: 30 MG, 2X/DAY FOR 7DAYS
     Route: 042
     Dates: start: 201901
  12. ASACOL [Concomitant]
     Active Substance: MESALAMINE
     Dosage: 1.6 G, 2X/DAY
     Route: 048
  13. 5-ASA [Concomitant]
     Active Substance: MESALAMINE
     Dosage: UNK
  14. PENTASA [Concomitant]
     Active Substance: MESALAMINE
     Dosage: 4 G, 1X/DAY
     Route: 048

REACTIONS (3)
  - Fatigue [Unknown]
  - Quality of life decreased [Unknown]
  - Condition aggravated [Recovering/Resolving]
